FAERS Safety Report 6609509-3 (Version None)
Quarter: 2010Q1

REPORT INFORMATION
  Report Type: 
  Country: None (occurrence: None)
  Receive Date: 20100302
  Receipt Date: 20100218
  Transmission Date: 20100710
  Serious: No
  Sender: FDA-Public Use
  Company Number: US-B.I. PHARMACEUTICALS,INC./RIDGEFIELD-2010-BP-01976BP

PATIENT
  Sex: Female

DRUGS (3)
  1. MIRAPEX [Suspect]
     Indication: PARKINSON'S DISEASE
     Dosage: 1.5 MG
     Route: 048
  2. MIRAPEX [Suspect]
     Dosage: 0.75 MG
     Route: 048
  3. PROZAC [Suspect]

REACTIONS (2)
  - DRY MOUTH [None]
  - TARDIVE DYSKINESIA [None]
